FAERS Safety Report 24222700 (Version 1)
Quarter: 2024Q3

REPORT INFORMATION
  Report Type: Spontaneous
  Country: US (occurrence: None)
  Receive Date: 20240816
  Receipt Date: 20240816
  Transmission Date: 20241017
  Serious: Yes (Other)
  Sender: Public
  Company Number: None

PATIENT
  Age: 74 Year
  Sex: Female

DRUGS (1)
  1. AIRSUPRA [Suspect]
     Active Substance: ALBUTEROL SULFATE\BUDESONIDE
     Indication: Asthma
     Dosage: FREQUENCY : AS NEEDED;?
     Route: 055
     Dates: start: 20240809, end: 20240811

REACTIONS (8)
  - Muscle spasms [None]
  - Abdominal pain upper [None]
  - Nausea [None]
  - Headache [None]
  - Irritability [None]
  - Photosensitivity reaction [None]
  - Myalgia [None]
  - Bone pain [None]

NARRATIVE: CASE EVENT DATE: 20240809
